FAERS Safety Report 17876153 (Version 2)
Quarter: 2020Q3

REPORT INFORMATION
  Report Type: Spontaneous
  Country: JP (occurrence: JP)
  Receive Date: 20200609
  Receipt Date: 20200708
  Transmission Date: 20201103
  Serious: Yes (Other)
  Sender: FDA-Public Use
  Company Number: JP-PFIZER INC-2020224109

PATIENT
  Age: 58 Year
  Sex: Male

DRUGS (12)
  1. XELJANZ [Suspect]
     Active Substance: TOFACITINIB CITRATE
     Indication: RHEUMATOID ARTHRITIS
     Dosage: 5 MG, 1X/DAY
     Route: 048
     Dates: start: 20160924, end: 20161005
  2. OLUMIANT [Concomitant]
     Active Substance: BARICITINIB
     Dosage: 2 MG, 1X/DAY
     Dates: start: 20190803, end: 20190917
  3. XELJANZ [Suspect]
     Active Substance: TOFACITINIB CITRATE
     Dosage: 5 MG, 2X/DAY
     Dates: start: 20200625
  4. OLUMIANT [Concomitant]
     Active Substance: BARICITINIB
     Dosage: 2 MG, 1X/DAY
     Dates: start: 20170925, end: 2017
  5. OLUMIANT [Concomitant]
     Active Substance: BARICITINIB
     Dosage: 4 MG, 1X/DAY
     Dates: start: 201802, end: 20190619
  6. OLUMIANT [Concomitant]
     Active Substance: BARICITINIB
     Dosage: 2 MG, 1X/DAY
     Dates: start: 20190620, end: 20190807
  7. METHOTREXATE. [Concomitant]
     Active Substance: METHOTREXATE
     Dosage: 2 DF
  8. OLUMIANT [Concomitant]
     Active Substance: BARICITINIB
     Dosage: 4 MG, 1X/DAY
     Dates: start: 20190918, end: 20191105
  9. OLUMIANT [Concomitant]
     Active Substance: BARICITINIB
     Dosage: 4 MG, 1X/DAY
     Dates: start: 20170322, end: 20170924
  10. OLUMIANT [Concomitant]
     Active Substance: BARICITINIB
     Dosage: 2 MG, 1X/DAY
     Dates: start: 20191106, end: 20191121
  11. XELJANZ [Suspect]
     Active Substance: TOFACITINIB CITRATE
     Dosage: 5 MG, 2X/DAY
     Route: 048
     Dates: start: 20161006, end: 20170321
  12. XELJANZ [Suspect]
     Active Substance: TOFACITINIB CITRATE
     Dosage: 5 MG, 2X/DAY
     Dates: start: 20191122, end: 20200623

REACTIONS (3)
  - General physical health deterioration [Unknown]
  - Decreased appetite [Unknown]
  - Herpes zoster [Unknown]

NARRATIVE: CASE EVENT DATE: 20200605
